FAERS Safety Report 14399127 (Version 1)
Quarter: 2018Q1

REPORT INFORMATION
  Report Type: Spontaneous
  Country: US (occurrence: US)
  Receive Date: 20180117
  Receipt Date: 20180117
  Transmission Date: 20180509
  Serious: No
  Sender: FDA-Public Use
  Company Number: US-JNJFOC-20171221899

PATIENT
  Sex: Male
  Weight: 86.6 kg

DRUGS (9)
  1. PRINIVIL [Concomitant]
     Active Substance: LISINOPRIL
     Route: 065
  2. ZESTRIL [Concomitant]
     Active Substance: LISINOPRIL
     Route: 065
  3. PROSCAR [Concomitant]
     Active Substance: FINASTERIDE
     Route: 065
  4. HYTRIN [Concomitant]
     Active Substance: TERAZOSIN HYDROCHLORIDE
     Route: 065
  5. HYGROTON [Concomitant]
     Active Substance: CHLORTHALIDONE
     Route: 065
  6. CATAPRES [Concomitant]
     Active Substance: CLONIDINE HYDROCHLORIDE
     Route: 065
  7. NEURONTIN [Concomitant]
     Active Substance: GABAPENTIN
     Route: 065
  8. XARELTO [Suspect]
     Active Substance: RIVAROXABAN
     Indication: PRODUCT USED FOR UNKNOWN INDICATION
     Route: 048
  9. CHOLECALCIFEROL [Concomitant]
     Active Substance: CHOLECALCIFEROL
     Route: 065

REACTIONS (2)
  - Oedema [Unknown]
  - Neuropathy peripheral [Unknown]
